FAERS Safety Report 8934819 (Version 2)
Quarter: 2013Q1

REPORT INFORMATION
  Report Type: Spontaneous
  Country: BE (occurrence: BE)
  Receive Date: 20121129
  Receipt Date: 20130201
  Transmission Date: 20140127
  Serious: Yes (Death, Hospitalization, Other)
  Sender: FDA-Public Use
  Company Number: BE-ASTELLAS-2012US011471

PATIENT
  Age: 45 None
  Sex: Male

DRUGS (3)
  1. PROGRAFT [Suspect]
     Indication: CHRONIC GRAFT VERSUS HOST DISEASE
     Dosage: UNK
     Route: 065
     Dates: start: 20061016
  2. IMURAN                             /00001501/ [Concomitant]
     Indication: CHRONIC GRAFT VERSUS HOST DISEASE
     Dosage: UNK
     Route: 065
     Dates: start: 20061016
  3. MEDROL                             /00049601/ [Concomitant]
     Indication: CHRONIC GRAFT VERSUS HOST DISEASE
     Dosage: UNK
     Route: 065
     Dates: start: 20061016

REACTIONS (14)
  - Off label use [Unknown]
  - Renal failure acute [Unknown]
  - Death [Fatal]
  - Graft versus host disease in lung [Unknown]
  - Pneumocystis jirovecii pneumonia [Unknown]
  - Leukopenia [Unknown]
  - Thrombocytopenia [Unknown]
  - Gastric ulcer [Unknown]
  - Haemoglobin decreased [Unknown]
  - Bronchopulmonary aspergillosis [Unknown]
  - Lung abscess [Unknown]
  - Pancytopenia [Unknown]
  - Weight decreased [Unknown]
  - Immunosuppressant drug level increased [Unknown]
